FAERS Safety Report 4940061-4 (Version None)
Quarter: 2006Q1

REPORT INFORMATION
  Report Type: 
  Country: None (occurrence: None)
  Receive Date: 20060310
  Receipt Date: 20060228
  Transmission Date: 20060701
  Serious: Yes (Hospitalization)
  Sender: FDA-Public Use
  Company Number: AU-ROCHE-438401

PATIENT
  Age: 52 Year
  Sex: Female
  Weight: 80 kg

DRUGS (4)
  1. CEFTRIAXONE SODIUM [Suspect]
     Indication: PNEUMONIA
     Route: 042
     Dates: start: 20050522, end: 20050522
  2. GOPTEN [Concomitant]
     Dosage: START DATE STATED AS LONG TERM.
     Route: 048
     Dates: end: 20050522
  3. IRBESARTAN AND HYDROCHLOROTHIAZIDE [Concomitant]
     Dosage: REPORTED AS AVAPRO HCT 300/12.5. START DATE STATED AS LONG TERM. TOTAL DAILY DOSE: ONE DOSE UNSPECI+
     Route: 048
     Dates: end: 20050522
  4. AMOXICILLIN [Concomitant]
     Dosage: THE PATIENT HAD TWO WEEKS OF AMOXYCILLIN PRESCRIBED BY LOCAL DOCTOR PRIOR TO ADMISSON.

REACTIONS (4)
  - DYSPNOEA [None]
  - ERYTHEMA [None]
  - URTICARIA [None]
  - WHEEZING [None]
